FAERS Safety Report 4790162-9 (Version None)
Quarter: 2005Q3

REPORT INFORMATION
  Report Type: 
  Country: None (occurrence: None)
  Receive Date: 20050914
  Receipt Date: 20040915
  Transmission Date: 20060218
  Serious: Yes (Other)
  Sender: FDA-Public Use
  Company Number: 163-20785-04070007

PATIENT
  Age: 73 Year
  Sex: Male

DRUGS (7)
  1. THALOMID [Suspect]
     Indication: MULTIPLE MYELOMA
     Dosage: SEE IMAGE
     Route: 048
     Dates: start: 20010301, end: 20020601
  2. THALOMID [Suspect]
     Indication: MULTIPLE MYELOMA
     Dosage: SEE IMAGE
     Route: 048
     Dates: start: 20020601
  3. PREDNISONE [Concomitant]
  4. OXYCONTIN [Concomitant]
  5. OXYCONTIN [Concomitant]
  6. NEURONTIN [Concomitant]
  7. WELLBUTRIN (IBUPROPION HYDROCHLORIDE) [Concomitant]

REACTIONS (4)
  - COORDINATION ABNORMAL [None]
  - MALAISE [None]
  - NAUSEA [None]
  - NEUROPATHY [None]
